FAERS Safety Report 24681092 (Version 1)
Quarter: 2024Q4

REPORT INFORMATION
  Report Type: Spontaneous
  Country: US (occurrence: US)
  Receive Date: 20241129
  Receipt Date: 20241129
  Transmission Date: 20250115
  Serious: No
  Sender: SANOFI AVENTIS
  Company Number: US-SA-2024SA348144

PATIENT
  Age: 16 Year
  Sex: Male
  Weight: 48.98 kg

DRUGS (8)
  1. DUPIXENT [Suspect]
     Active Substance: DUPILUMAB
     Indication: Asthma
     Dosage: 300 MG, QOW
     Route: 058
     Dates: start: 202204
  2. SINGULAIR [Concomitant]
     Active Substance: MONTELUKAST SODIUM
  3. TOPIRAMATE [Concomitant]
     Active Substance: TOPIRAMATE
  4. BACLOFEN [Concomitant]
     Active Substance: BACLOFEN
  5. FERROUS SULFATE [Concomitant]
     Active Substance: FERROUS SULFATE
  6. ASTELIN [Concomitant]
     Active Substance: AZELASTINE HYDROCHLORIDE
  7. PRILOSEC OTC [Concomitant]
     Active Substance: OMEPRAZOLE MAGNESIUM
  8. SUMATRIPTAN SUCCINATE [Concomitant]
     Active Substance: SUMATRIPTAN SUCCINATE

REACTIONS (1)
  - Sinusitis [Recovering/Resolving]

NARRATIVE: CASE EVENT DATE: 20241001
